FAERS Safety Report 10216605 (Version 1)
Quarter: 2014Q2

REPORT INFORMATION
  Report Type: Spontaneous
  Country: US (occurrence: US)
  Receive Date: 20140604
  Receipt Date: 20140604
  Transmission Date: 20141212
  Serious: No
  Sender: FDA-Public Use
  Company Number: US-PFIZER INC-2014151972

PATIENT
  Age: 51 Year
  Sex: Female
  Weight: 95.24 kg

DRUGS (12)
  1. LYRICA [Suspect]
     Indication: FIBROMYALGIA
     Dosage: 75 MG, 2X/DAY
     Route: 048
     Dates: start: 201401, end: 2014
  2. LYRICA [Suspect]
     Dosage: 150 MG (BY TAKING TWO 75MG CAPSULE), 2X/DAY
     Route: 048
     Dates: start: 2014, end: 2014
  3. LYRICA [Suspect]
     Dosage: 200 MG, 2X/DAY
     Route: 048
     Dates: start: 2014
  4. PROZAC [Concomitant]
     Dosage: UNK
  5. LISINOPRIL [Concomitant]
     Dosage: UNK
  6. KLOR-CON [Concomitant]
     Dosage: UNK
  7. FLEXERIL [Concomitant]
     Dosage: UNK
  8. HYDROCORTISON [Concomitant]
     Dosage: UNK
  9. ASPIRIN [Concomitant]
     Dosage: 81 MG, 1X/DAY
  10. ALLEGRA [Concomitant]
     Dosage: UNK
  11. MAGNESIUM OXIDE [Concomitant]
     Dosage: UNK
  12. LOVASTATIN [Concomitant]
     Indication: BLOOD CHOLESTEROL INCREASED
     Dosage: UNK

REACTIONS (1)
  - Drug ineffective [Unknown]
